FAERS Safety Report 8715484 (Version 3)
Quarter: 2012Q4

REPORT INFORMATION
  Report Type: 
  Country: FR (occurrence: FR)
  Receive Date: 20120809
  Receipt Date: 20121029
  Transmission Date: 20130627
  Serious: Yes (Hospitalization)
  Sender: FDA-Public Use
  Company Number: FR-ROCHE-1097979

PATIENT
  Age: 65 Year
  Sex: Female

DRUGS (3)
  1. COPEGUS [Suspect]
     Indication: HEPATITIS C
     Route: 048
     Dates: start: 20120601, end: 20120717
  2. PEGASYS [Suspect]
     Indication: HEPATITIS C
     Route: 058
     Dates: start: 20120601, end: 20120717
  3. INCIVO [Suspect]
     Indication: HEPATITIS C
     Route: 048
     Dates: start: 20120601, end: 20120716

REACTIONS (3)
  - Rash maculo-papular [Recovered/Resolved]
  - Purpura [Recovered/Resolved]
  - Mucosal ulceration [Recovered/Resolved]
